FAERS Safety Report 15379876 (Version 3)
Quarter: 2020Q1

REPORT INFORMATION
  Report Type: Report from Study
  Country: US (occurrence: US)
  Receive Date: 20180913
  Receipt Date: 20200110
  Transmission Date: 20200409
  Serious: No
  Sender: FDA-Public Use
  Company Number: PHHY2018US097025

PATIENT
  Age: 38 Year
  Sex: Male

DRUGS (1)
  1. AFINITOR [Suspect]
     Active Substance: EVEROLIMUS
     Indication: ANGIOMYOLIPOMA
     Dosage: 15 MG, QD
     Route: 048
     Dates: start: 20121220

REACTIONS (4)
  - Joint swelling [Not Recovered/Not Resolved]
  - Ear infection [Recovered/Resolved]
  - Otorrhoea [Recovered/Resolved]
  - Ear pain [Recovered/Resolved]

NARRATIVE: CASE EVENT DATE: 20191204
